FAERS Safety Report 7014820-0 (Version None)
Quarter: 2010Q3

REPORT INFORMATION
  Report Type: 
  Country: None (occurrence: None)
  Receive Date: 20100927
  Receipt Date: 20100923
  Transmission Date: 20110219
  Serious: Yes (Hospitalization)
  Sender: FDA-Public Use
  Company Number: US-BRISTOL-MYERS SQUIBB COMPANY-15300791

PATIENT
  Age: 87 Year
  Sex: Male
  Weight: 73 kg

DRUGS (4)
  1. ERBITUX [Suspect]
     Indication: OESOPHAGEAL ADENOCARCINOMA
     Dosage: LAST DOSE ON:03AUG2010 400MG/M2;250MG/M2 ON DAY 8,15,22,29,36
     Dates: start: 20100629, end: 20100803
  2. CISPLATIN [Suspect]
     Indication: OESOPHAGEAL ADENOCARCINOMA
     Dosage: LAST DOSE ON:03AUG2010 25MG/M2 ON DAY 1,8,15,22,29,36
     Dates: start: 20100629, end: 20100803
  3. TAXOL [Suspect]
     Indication: OESOPHAGEAL ADENOCARCINOMA
     Dosage: LAST DOSE ON:03AUG2010 50MG/M2 ON DAY 1,8,15,22,29,36
     Dates: start: 20100629, end: 20100803
  4. RADIATION THERAPY [Suspect]
     Indication: OESOPHAGEAL ADENOCARCINOMA
     Dosage: 1DF:50.4GY, EXTERNAL BEAM,IMRT LAST DOSE:06AUG2010;NO OF FRACTIONS:28; NO OF ELAPSED DAYS:38
     Dates: start: 20100629, end: 20100806

REACTIONS (4)
  - DERMATITIS ACNEIFORM [None]
  - DIARRHOEA [None]
  - DYSPHAGIA [None]
  - HAEMOGLOBIN DECREASED [None]
